FAERS Safety Report 6561716-4 (Version None)
Quarter: 2010Q1

REPORT INFORMATION
  Report Type: 
  Country: None (occurrence: None)
  Receive Date: 20100130
  Receipt Date: 20091026
  Transmission Date: 20100710
  Serious: No
  Sender: FDA-Public Use
  Company Number: US-ABBOTT-09P-163-0605600-00

PATIENT
  Age: 52 Year
  Sex: Female

DRUGS (4)
  1. HUMIRA [Suspect]
     Indication: PSORIATIC ARTHROPATHY
     Dates: start: 20090501
  2. ARAVA [Concomitant]
     Indication: PSORIATIC ARTHROPATHY
  3. CLONIDINE [Concomitant]
     Indication: HYPERTENSION
  4. NIFEDIPINE [Concomitant]
     Indication: HYPERTENSION

REACTIONS (1)
  - ALOPECIA [None]
